FAERS Safety Report 8492501-4 (Version None)
Quarter: 2012Q3

REPORT INFORMATION
  Report Type: 
  Country: None (occurrence: None)
  Receive Date: 20120706
  Receipt Date: 20120702
  Transmission Date: 20120928
  Serious: No
  Sender: FDA-Public Use
  Company Number: US-PFIZER INC-2012150192

PATIENT

DRUGS (2)
  1. DOXYCYCLINE HYCLATE [Suspect]
     Dosage: UNK
  2. FLAGYL [Suspect]
     Dosage: UNK

REACTIONS (3)
  - VOMITING [None]
  - DRUG HYPERSENSITIVITY [None]
  - NAUSEA [None]
